FAERS Safety Report 20952309 (Version 1)
Quarter: 2022Q2

REPORT INFORMATION
  Report Type: Spontaneous
  Country: US (occurrence: US)
  Receive Date: 20220613
  Receipt Date: 20220613
  Transmission Date: 20220721
  Serious: No
  Sender: FDA-Public Use
  Company Number: US-PFIZER INC-202200827662

PATIENT
  Age: 100 Year
  Sex: Female

DRUGS (1)
  1. IBRANCE [Suspect]
     Active Substance: PALBOCICLIB
     Dosage: 75 MG, CYCLIC (1 TABLET BY MOUTH EVERY DAY FOR 3 WEEKS ON THEN 1 WEEK OFF EACH 28 DAY CYCLE)
     Route: 048

REACTIONS (1)
  - Neoplasm progression [Unknown]
